FAERS Safety Report 14876244 (Version 4)
Quarter: 2023Q2

REPORT INFORMATION
  Report Type: Spontaneous
  Country: US (occurrence: None)
  Receive Date: 20180510
  Receipt Date: 20230501
  Transmission Date: 20230721
  Serious: Yes (Other)
  Sender: FDA-Public Use
  Company Number: 2018SE57516

PATIENT
  Age: 603 Month
  Sex: Female
  Weight: 65.8 kg

DRUGS (138)
  1. NEXIUM [Suspect]
     Active Substance: ESOMEPRAZOLE MAGNESIUM
     Indication: Gastrooesophageal reflux disease
     Route: 048
     Dates: start: 2008, end: 2015
  2. NEXIUM [Suspect]
     Active Substance: ESOMEPRAZOLE MAGNESIUM
     Indication: Gastrooesophageal reflux disease
     Route: 048
     Dates: start: 20090323
  3. NEXIUM [Suspect]
     Active Substance: ESOMEPRAZOLE MAGNESIUM
     Indication: Gastrooesophageal reflux disease
     Route: 048
     Dates: start: 20110708
  4. NEXIUM [Suspect]
     Active Substance: ESOMEPRAZOLE MAGNESIUM
     Indication: Gastrooesophageal reflux disease
     Route: 048
     Dates: start: 2012, end: 2018
  5. NEXIUM [Suspect]
     Active Substance: ESOMEPRAZOLE MAGNESIUM
     Indication: Gastrooesophageal reflux disease
     Route: 048
     Dates: start: 20121129
  6. NEXIUM [Suspect]
     Active Substance: ESOMEPRAZOLE MAGNESIUM
     Indication: Gastrooesophageal reflux disease
     Dosage: GENERIC
     Route: 048
     Dates: start: 20140328
  7. NEXIUM [Suspect]
     Active Substance: ESOMEPRAZOLE MAGNESIUM
     Indication: Gastrooesophageal reflux disease
     Dosage: GENERIC
     Dates: start: 2015
  8. NEXIUM [Suspect]
     Active Substance: ESOMEPRAZOLE MAGNESIUM
     Indication: Gastrooesophageal reflux disease
     Route: 048
     Dates: start: 2001, end: 2015
  9. OMEPRAZOLE [Suspect]
     Active Substance: OMEPRAZOLE
     Indication: Gastrooesophageal reflux disease
     Dosage: GENERIC
     Dates: start: 2015
  10. OMEPRAZOLE [Suspect]
     Active Substance: OMEPRAZOLE
     Indication: Gastrooesophageal reflux disease
     Dosage: GENERIC
     Dates: start: 20150602
  11. OMEPRAZOLE [Suspect]
     Active Substance: OMEPRAZOLE
     Indication: Gastrooesophageal reflux disease
     Dosage: GENERIC
     Dates: start: 20170526
  12. OMEPRAZOLE [Suspect]
     Active Substance: OMEPRAZOLE
     Indication: Gastrooesophageal reflux disease
     Dosage: GENERIC
     Dates: start: 20170908
  13. DEXILANT [Suspect]
     Active Substance: DEXLANSOPRAZOLE
     Indication: Gastrooesophageal reflux disease
     Route: 048
     Dates: start: 20110708
  14. DEXILANT [Suspect]
     Active Substance: DEXLANSOPRAZOLE
     Indication: Gastrooesophageal reflux disease
     Dates: start: 2012, end: 2018
  15. DEXILANT [Suspect]
     Active Substance: DEXLANSOPRAZOLE
     Indication: Gastrooesophageal reflux disease
     Dates: start: 2018
  16. PROTONIX [Suspect]
     Active Substance: PANTOPRAZOLE SODIUM
     Indication: Gastrooesophageal reflux disease
     Dates: start: 20101109
  17. PROTONIX [Suspect]
     Active Substance: PANTOPRAZOLE SODIUM
     Indication: Ulcer haemorrhage
     Dates: start: 20101109
  18. PROTONIX [Suspect]
     Active Substance: PANTOPRAZOLE SODIUM
     Indication: Gastrooesophageal reflux disease
     Dosage: GENERIC PANTOPRAZOLE SODIUM
     Dates: start: 2017
  19. PROTONIX [Suspect]
     Active Substance: PANTOPRAZOLE SODIUM
     Indication: Ulcer haemorrhage
     Dosage: GENERIC PANTOPRAZOLE SODIUM
     Dates: start: 2017
  20. PROTONIX [Suspect]
     Active Substance: PANTOPRAZOLE SODIUM
     Indication: Gastrooesophageal reflux disease
     Dosage: GENERIC
     Route: 048
     Dates: start: 20170712
  21. PROTONIX [Suspect]
     Active Substance: PANTOPRAZOLE SODIUM
     Indication: Ulcer haemorrhage
     Dosage: GENERIC
     Route: 048
     Dates: start: 20170712
  22. PROTONIX [Suspect]
     Active Substance: PANTOPRAZOLE SODIUM
     Indication: Gastrooesophageal reflux disease
     Route: 048
     Dates: start: 20170921
  23. PROTONIX [Suspect]
     Active Substance: PANTOPRAZOLE SODIUM
     Indication: Ulcer haemorrhage
     Route: 048
     Dates: start: 20170921
  24. PROTONIX [Suspect]
     Active Substance: PANTOPRAZOLE SODIUM
     Indication: Gastrooesophageal reflux disease
     Route: 048
  25. PROTONIX [Suspect]
     Active Substance: PANTOPRAZOLE SODIUM
     Indication: Ulcer haemorrhage
     Route: 048
  26. PROTONIX [Suspect]
     Active Substance: PANTOPRAZOLE SODIUM
     Indication: Gastrooesophageal reflux disease
     Dosage: GENERIC
     Dates: start: 2021
  27. PROTONIX [Suspect]
     Active Substance: PANTOPRAZOLE SODIUM
     Indication: Ulcer haemorrhage
     Dosage: GENERIC
     Dates: start: 2021
  28. ACYCLOVIR [Concomitant]
     Active Substance: ACYCLOVIR
     Indication: Herpes virus infection
     Dates: start: 2017, end: 2018
  29. AMOXICILLIN\CLAVULANATE POTASSIUM [Concomitant]
     Active Substance: AMOXICILLIN\CLAVULANATE POTASSIUM
     Indication: Infection
     Dates: start: 2018
  30. AMOXICILLIN [Concomitant]
     Active Substance: AMOXICILLIN
     Indication: Infection
     Dates: start: 2015, end: 2016
  31. ASPIRIN [Concomitant]
     Active Substance: ASPIRIN
     Indication: Cardiac disorder
     Dates: start: 2014, end: 2016
  32. AZITHROMYCIN [Concomitant]
     Active Substance: AZITHROMYCIN
     Indication: Infection
     Dates: start: 2017
  33. CYANOCOBALAMIN/LYSINE [Concomitant]
     Indication: Nutritional supplementation
     Dates: start: 2018
  34. BACLOFEN [Concomitant]
     Active Substance: BACLOFEN
     Indication: Muscle spasms
     Dates: start: 2016
  35. BENZONATATE [Concomitant]
     Active Substance: BENZONATATE
     Indication: Cough
     Dates: start: 2015
  36. BENZTROPINE [Concomitant]
     Active Substance: BENZTROPINE
     Indication: Cough
     Dates: start: 2018
  37. BUPROPION [Concomitant]
     Active Substance: BUPROPION
     Indication: Depression
     Dates: start: 2013, end: 2014
  38. CARBAMAZEPINE [Concomitant]
     Active Substance: CARBAMAZEPINE
     Indication: Bipolar disorder
     Dates: start: 2012
  39. CARISOPRODOL [Concomitant]
     Active Substance: CARISOPRODOL
     Indication: Muscle spasms
     Dates: start: 2016, end: 2017
  40. CARVEDILOL [Concomitant]
     Active Substance: CARVEDILOL
     Indication: Hypertension
     Dates: start: 2014, end: 2016
  41. CIPROFLOXACIN [Concomitant]
     Active Substance: CIPROFLOXACIN
     Indication: Infection
     Dates: start: 2014
  42. CLINDAMYCIN [Concomitant]
     Active Substance: CLINDAMYCIN
     Indication: Infection
     Dates: start: 2016
  43. CLONAZEPAM [Concomitant]
     Active Substance: CLONAZEPAM
     Indication: Anxiety
     Dates: start: 2012, end: 2018
  44. CRESTOR [Concomitant]
     Active Substance: ROSUVASTATIN CALCIUM
     Indication: Blood cholesterol increased
     Dates: start: 2012, end: 2015
  45. CYCLOBENZAPRINE [Concomitant]
     Active Substance: CYCLOBENZAPRINE
     Indication: Muscle spasms
     Dates: start: 2016
  46. DIAZEPAM [Concomitant]
     Active Substance: DIAZEPAM
     Indication: Anxiety
     Dates: start: 2015
  47. DICYCLOMINE [Concomitant]
     Active Substance: DICYCLOMINE HYDROCHLORIDE
     Indication: Irritable bowel syndrome
     Dates: start: 2016
  48. DIVALPROEX SODIUM [Concomitant]
     Active Substance: DIVALPROEX SODIUM
     Indication: Bipolar disorder
     Dates: start: 2017
  49. DOK [Concomitant]
     Active Substance: DOCUSATE SODIUM
     Indication: Constipation
     Dates: start: 2017
  50. DOXEPIN HCL [Concomitant]
     Active Substance: DOXEPIN HYDROCHLORIDE
     Indication: Depression
     Dates: start: 2016, end: 2017
  51. FLUCONAZOLE [Concomitant]
     Active Substance: FLUCONAZOLE
     Indication: Fungal infection
     Dates: start: 2014
  52. FUROSEMIDE [Concomitant]
     Active Substance: FUROSEMIDE
     Indication: Hypertension
     Dates: start: 2014, end: 2015
  53. FUROSEMIDE [Concomitant]
     Active Substance: FUROSEMIDE
     Indication: Hypertension
     Route: 048
     Dates: start: 20151229
  54. GLIMEPIRIDE [Concomitant]
     Active Substance: GLIMEPIRIDE
     Indication: Diabetes mellitus
     Dates: start: 2014
  55. HYDROCODONE [Concomitant]
     Active Substance: HYDROCODONE
     Indication: Pain
     Dates: start: 2013, end: 2014
  56. HYDROMORPHONE [Concomitant]
     Active Substance: HYDROMORPHONE
     Indication: Pain
     Dates: start: 2015
  57. HYDROXYZINE [Concomitant]
     Active Substance: HYDROXYZINE HYDROCHLORIDE
     Indication: Hypersensitivity
     Dates: start: 2018
  58. IBUPROFEN [Concomitant]
     Active Substance: IBUPROFEN
     Indication: Inflammation
     Dates: start: 2013
  59. IBUPROFEN [Concomitant]
     Active Substance: IBUPROFEN
     Indication: Pain
     Dates: start: 2013
  60. ISOSORBRIDE [Concomitant]
     Indication: Angina pectoris
     Dates: start: 2014, end: 2015
  61. JANUMET [Concomitant]
     Active Substance: METFORMIN HYDROCHLORIDE\SITAGLIPTIN PHOSPHATE
     Indication: Diabetes mellitus
     Dates: start: 2018
  62. LAMOTRIGINE [Concomitant]
     Active Substance: LAMOTRIGINE
     Indication: Bipolar disorder
     Dates: start: 2012, end: 2018
  63. LEVOFLOXACIN [Concomitant]
     Active Substance: LEVOFLOXACIN
     Indication: Infection
     Dates: start: 2016
  64. LEVOTHYROXINE [Concomitant]
     Active Substance: LEVOTHYROXINE
     Indication: Hyperthyroidism
     Dates: start: 2012, end: 2018
  65. LIDOCAINE [Concomitant]
     Active Substance: LIDOCAINE
     Indication: Pain
     Dates: start: 2017
  66. LISINOPRIL [Concomitant]
     Active Substance: LISINOPRIL
     Indication: Hypertension
     Dates: start: 2016
  67. METFORMIN [Concomitant]
     Active Substance: METFORMIN HYDROCHLORIDE
     Indication: Diabetes mellitus
     Dates: start: 2012, end: 2013
  68. METHOCARBAMOL [Concomitant]
     Active Substance: METHOCARBAMOL
     Indication: Muscle spasms
     Dates: start: 2017
  69. METHYLPREDNISOLONE [Concomitant]
     Active Substance: METHYLPREDNISOLONE
     Indication: Inflammation
     Dates: start: 2013
  70. MUPIROCIN [Concomitant]
     Active Substance: MUPIROCIN
     Indication: Infection
     Dates: start: 2015
  71. NAPROXEN [Concomitant]
     Active Substance: NAPROXEN
     Indication: Inflammation
     Dates: start: 2014
  72. NARCAN [Concomitant]
     Active Substance: NALOXONE HYDROCHLORIDE
     Indication: Drug abuse
     Dates: start: 2018
  73. NITROSTAT [Concomitant]
     Active Substance: NITROGLYCERIN
     Indication: Angina pectoris
     Dates: start: 2014
  74. ONDANSETRON [Concomitant]
     Active Substance: ONDANSETRON
     Indication: Nausea
     Dates: start: 2015, end: 2018
  75. OSELTAMIVIR [Concomitant]
     Active Substance: OSELTAMIVIR
     Indication: Influenza
     Dates: start: 2018
  76. PENICILLIN [Concomitant]
     Active Substance: PENICILLIN
     Indication: Infection
     Dates: start: 2012
  77. POTASSIUM CHLORIDE [Concomitant]
     Active Substance: POTASSIUM CHLORIDE
     Indication: Nutritional supplementation
     Dates: start: 2014, end: 2015
  78. PROPRANOLOL [Concomitant]
     Active Substance: PROPRANOLOL HYDROCHLORIDE
     Indication: Hypertension
     Dates: start: 2017
  79. QUETIAPINE FUMARATE [Concomitant]
     Active Substance: QUETIAPINE FUMARATE
     Indication: Bipolar disorder
     Dates: start: 2016, end: 2018
  80. RANITIDINE [Concomitant]
     Active Substance: RANITIDINE
     Indication: Gastrooesophageal reflux disease
     Dates: start: 2018
  81. ROPINIROLE [Concomitant]
     Active Substance: ROPINIROLE
     Indication: Parkinson^s disease
     Dates: start: 2017, end: 2018
  82. SPIRONOLACTONE [Concomitant]
     Active Substance: SPIRONOLACTONE
     Indication: Hypertension
     Dates: start: 2014, end: 2015
  83. SUCRALFATE [Concomitant]
     Active Substance: SUCRALFATE
     Indication: Ulcer
     Dates: start: 2017
  84. TAMSULOSIN [Concomitant]
     Active Substance: TAMSULOSIN
     Indication: Hypertension
     Dates: start: 2012
  85. TEMAZEPAM [Concomitant]
     Active Substance: TEMAZEPAM
     Indication: Anxiety
     Dates: start: 2012
  86. TOPIRAMATE [Concomitant]
     Active Substance: TOPIRAMATE
     Indication: Seizure
     Dates: start: 2012, end: 2017
  87. CHOLINE/OXITRIPTAN/THEOBROMA CACAO/GLUTAMIC ACID/TRAZODONE/VITIS VINIF [Concomitant]
     Indication: Depression
     Dates: start: 2016
  88. TRIHEXYPHENIDYL [Concomitant]
     Active Substance: TRIHEXYPHENIDYL
     Indication: Parkinson^s disease
     Dates: start: 2017
  89. VALTREX [Concomitant]
     Active Substance: VALACYCLOVIR HYDROCHLORIDE
     Indication: Herpes virus infection
     Dates: start: 2015
  90. VICTOZA [Concomitant]
     Active Substance: LIRAGLUTIDE
     Indication: Diabetes mellitus
     Dates: start: 2014, end: 2015
  91. VITAMIN D2 [Concomitant]
     Active Substance: ERGOCALCIFEROL
     Indication: Nutritional supplementation
     Dates: start: 2017, end: 2018
  92. ZENPEP [Concomitant]
     Active Substance: PANCRELIPASE AMYLASE\PANCRELIPASE LIPASE\PANCRELIPASE PROTEASE
     Indication: Nutritional supplementation
     Dates: start: 2017
  93. ZETIA [Concomitant]
     Active Substance: EZETIMIBE
     Indication: Blood cholesterol
     Dates: start: 2017
  94. ZINC [Concomitant]
     Active Substance: ZINC
     Indication: Nutritional supplementation
     Dates: start: 2017
  95. ZOLPIDEM [Concomitant]
     Active Substance: ZOLPIDEM TARTRATE
     Indication: Anxiety
     Dates: start: 2017
  96. ACETAMINOPHEN [Concomitant]
     Active Substance: ACETAMINOPHEN
     Indication: Pain
     Dates: start: 2000, end: 2017
  97. BENADRYL [Concomitant]
     Active Substance: DIPHENHYDRAMINE HYDROCHLORIDE
     Indication: Nasopharyngitis
     Dates: start: 2007
  98. PEPTO-BISMOL [Concomitant]
     Active Substance: BISMUTH SUBSALICYLATE
     Dates: start: 2007
  99. MAALOX ANTACID [Concomitant]
     Active Substance: ALUMINUM HYDROXIDE\DIMETHICONE\MAGNESIUM HYDROXIDE
     Dates: start: 2015
  100. JANUVIA [Concomitant]
     Active Substance: SITAGLIPTIN PHOSPHATE
     Dates: start: 20110517
  101. BACTRIM [Concomitant]
     Active Substance: SULFAMETHOXAZOLE\TRIMETHOPRIM
     Dosage: 1 TAB(S) ORAL TWICE A DAY
     Route: 048
     Dates: start: 20171002
  102. GABAPENTIN [Concomitant]
     Active Substance: GABAPENTIN
  103. FENOFIBRATE [Concomitant]
     Active Substance: FENOFIBRATE
  104. DOXYCYCLINE [Concomitant]
     Active Substance: DOXYCYCLINE
  105. BUDESONIDE [Concomitant]
     Active Substance: BUDESONIDE
  106. GUAIFENESIN [Concomitant]
     Active Substance: GUAIFENESIN
  107. MORPHINE [Concomitant]
     Active Substance: MORPHINE
  108. CEFTRIAXONE [Concomitant]
     Active Substance: CEFTRIAXONE
  109. INSULIN NOS [Concomitant]
     Active Substance: INSULIN NOS
  110. PROGESTERONE [Concomitant]
     Active Substance: PROGESTERONE
  111. XARELTO [Concomitant]
     Active Substance: RIVAROXABAN
  112. ACCORD [Concomitant]
  113. VITAMINS [Concomitant]
     Active Substance: VITAMINS
  114. ALBUTEROL [Concomitant]
     Active Substance: ALBUTEROL
  115. AMLODIPINE [Concomitant]
     Active Substance: AMLODIPINE BESYLATE
  116. CLOBETASOL PROPIONATE [Concomitant]
     Active Substance: CLOBETASOL PROPIONATE
  117. FERROUS SULFATE [Concomitant]
     Active Substance: FERROUS SULFATE
  118. FAMOTIDINE [Concomitant]
     Active Substance: FAMOTIDINE
  119. LACTULOSE [Concomitant]
     Active Substance: LACTULOSE
  120. LINACLOTIDE [Concomitant]
     Active Substance: LINACLOTIDE
  121. GLYCOPYRROLATE [Concomitant]
     Active Substance: GLYCOPYRROLATE
  122. NYSTATIN TRIAMCINOLONE [Concomitant]
  123. MALOXONE [Concomitant]
  124. ACETAMINOPHEN\OXYCODONE HYDROCHLORIDE [Concomitant]
     Active Substance: ACETAMINOPHEN\OXYCODONE HYDROCHLORIDE
     Dates: start: 2014, end: 2018
  125. CEPHALEXIN [Concomitant]
     Active Substance: CEPHALEXIN
  126. PREDNISONE [Concomitant]
     Active Substance: PREDNISONE
  127. RISPERIDONE [Concomitant]
     Active Substance: RISPERIDONE
  128. CELEXA [Concomitant]
     Active Substance: CITALOPRAM HYDROBROMIDE
  129. ALENDRONATE [Concomitant]
     Active Substance: ALENDRONATE SODIUM
  130. SULFAMETHOXAZOLE SODIUM/AMINOCAPROIC ACID/DIPOTASSIUM GLYCYRRHIZATE [Concomitant]
  131. ARIPIPRAZOLE [Concomitant]
     Active Substance: ARIPIPRAZOLE
  132. METOCLOPRAMIDE [Concomitant]
     Active Substance: METOCLOPRAMIDE
  133. XIFAXAN [Concomitant]
     Active Substance: RIFAXIMIN
  134. VANCOMYCIN [Concomitant]
     Active Substance: VANCOMYCIN
  135. ACIPHEX [Concomitant]
     Active Substance: RABEPRAZOLE SODIUM
  136. POLYETHYLENE GLYCOL [Concomitant]
     Active Substance: POLYETHYLENE GLYCOL
  137. COLLAGEN [Concomitant]
     Active Substance: COLLAGEN
  138. ERYTHROMYCIN [Concomitant]
     Active Substance: ERYTHROMYCIN

REACTIONS (4)
  - Acute kidney injury [Not Recovered/Not Resolved]
  - Chronic kidney disease [Not Recovered/Not Resolved]
  - Renal failure [Not Recovered/Not Resolved]
  - Renal tubular necrosis [Unknown]

NARRATIVE: CASE EVENT DATE: 20100301
